FAERS Safety Report 8851271 (Version 5)
Quarter: 2012Q4

REPORT INFORMATION
  Report Type: Report from Study
  Country: ES (occurrence: ES)
  Receive Date: 20121019
  Receipt Date: 20121226
  Transmission Date: 20130627
  Serious: Yes (Hospitalization)
  Sender: FDA-Public Use
  Company Number: ES-AMGEN-ESPCT2012066189

PATIENT
  Age: 60 Year
  Sex: Male
  Weight: 79 kg

DRUGS (4)
  1. PANITUMUMAB [Suspect]
     Indication: ANAL CANCER
     Dosage: 468 mg, UNK
     Route: 042
     Dates: start: 20120828, end: 20120925
  2. 5 FU [Concomitant]
     Indication: ANAL CANCER
     Dosage: 7720 mg, UNK
     Route: 042
     Dates: start: 20120828, end: 20120925
  3. MITOMICINA C [Concomitant]
     Indication: ANAL CANCER
     Dosage: 19.3 mg, UNK
     Route: 042
     Dates: start: 20120828, end: 20120925
  4. ANTIHYPERTENSIVES [Concomitant]

REACTIONS (1)
  - Skin infection [Recovered/Resolved]
